FAERS Safety Report 23173866 (Version 1)
Quarter: 2023Q4

REPORT INFORMATION
  Report Type: Spontaneous
  Country: CN (occurrence: CN)
  Receive Date: 20231111
  Receipt Date: 20231111
  Transmission Date: 20240110
  Serious: Yes (Other)
  Sender: FDA-Public Use
  Company Number: None

PATIENT
  Age: 75 Year
  Sex: Male
  Weight: 60 kg

DRUGS (2)
  1. MANNITOL [Suspect]
     Active Substance: MANNITOL
     Indication: Reduction of increased intracranial pressure
     Dosage: (DOSAGE FORM: INJECTION) 30 G, 3 TIMES A DAY
     Route: 041
     Dates: start: 20231015, end: 20231018
  2. MANNITOL [Suspect]
     Active Substance: MANNITOL
     Indication: Cerebral haemorrhage

REACTIONS (2)
  - Hypersensitivity [Recovering/Resolving]
  - Rash maculo-papular [Recovering/Resolving]

NARRATIVE: CASE EVENT DATE: 20231018
